FAERS Safety Report 15833319 (Version 1)
Quarter: 2019Q1

REPORT INFORMATION
  Report Type: Spontaneous
  Country: US (occurrence: US)
  Receive Date: 20190116
  Receipt Date: 20190116
  Transmission Date: 20190417
  Serious: No
  Sender: FDA-Public Use
  Company Number: US-OPTINOSE US, INC.-US-2018OPT000337

PATIENT
  Age: 50 Year
  Sex: Female

DRUGS (2)
  1. XHANCE [Suspect]
     Active Substance: FLUTICASONE PROPIONATE
     Indication: RHINITIS ALLERGIC
     Dosage: 372 ?G, BID (2 SPRAYS EACH NOSTRIL BID)
     Route: 045
     Dates: start: 201805
  2. XHANCE [Suspect]
     Active Substance: FLUTICASONE PROPIONATE
     Indication: CONJUNCTIVITIS ALLERGIC

REACTIONS (3)
  - Epistaxis [Recovered/Resolved]
  - Product use in unapproved indication [Unknown]
  - Skin exfoliation [Not Recovered/Not Resolved]

NARRATIVE: CASE EVENT DATE: 2018
